FAERS Safety Report 9438697 (Version 1)
Quarter: 2013Q3

REPORT INFORMATION
  Report Type: Report from Study
  Country: US (occurrence: US)
  Receive Date: 20130802
  Receipt Date: 20130802
  Transmission Date: 20140515
  Serious: Yes (Other)
  Sender: FDA-Public Use
  Company Number: CHPA2013US012154

PATIENT
  Age: 58 Year
  Sex: Female

DRUGS (2)
  1. PREVACID 24HR 15MG [Suspect]
     Indication: DYSPEPSIA
     Dosage: 15 MG, ONCE/SINGLE
     Dates: start: 20130731, end: 20130731
  2. BENADRYL ^PFIZER WARNER-LAMBERT^ [Suspect]
     Indication: URTICARIA
     Dosage: UNK, UNK
     Route: 048
     Dates: start: 20130731

REACTIONS (11)
  - Throat tightness [Unknown]
  - Swelling [Unknown]
  - Blood glucose abnormal [Unknown]
  - Nausea [Unknown]
  - Vomiting [Unknown]
  - Diarrhoea [Unknown]
  - Urticaria [Unknown]
  - Pruritus [Unknown]
  - Somnolence [Unknown]
  - Feeling abnormal [Not Recovered/Not Resolved]
  - Off label use [Unknown]
